FAERS Safety Report 10297485 (Version 3)
Quarter: 2014Q3

REPORT INFORMATION
  Report Type: Spontaneous
  Country: JP (occurrence: JP)
  Receive Date: 20140711
  Receipt Date: 20140814
  Transmission Date: 20150326
  Serious: Yes (Other)
  Sender: FDA-Public Use
  Company Number: PHHY2013JP060191

PATIENT
  Sex: Female

DRUGS (3)
  1. LAMISIL [Suspect]
     Active Substance: TERBINAFINE HYDROCHLORIDE
     Dosage: 125 MG, QD
     Route: 048
     Dates: start: 20130425, end: 20130609
  2. CHLOMY [Concomitant]
     Active Substance: CHLORAMPHENICOL
     Dosage: UNK UKN, UNK
     Dates: start: 20130517, end: 20130616
  3. EMPECID [Concomitant]
     Dosage: UNK UKN, UNK
     Dates: start: 20130517, end: 20130616

REACTIONS (2)
  - Abortion threatened [Unknown]
  - Maternal exposure during pregnancy [Unknown]

NARRATIVE: CASE EVENT DATE: 20130610
